FAERS Safety Report 9307013 (Version 2)
Quarter: 2013Q2

REPORT INFORMATION
  Report Type: Spontaneous
  Country: JP (occurrence: JP)
  Receive Date: 20130523
  Receipt Date: 20130611
  Transmission Date: 20140414
  Serious: Yes (Other)
  Sender: FDA-Public Use
  Company Number: JP-009507513-1305JPN012739

PATIENT
  Sex: Male

DRUGS (3)
  1. GLACTIV [Suspect]
     Indication: TYPE 2 DIABETES MELLITUS
     Dosage: 25 MG, QD
     Route: 048
     Dates: start: 20130304, end: 2013
  2. GLACTIV [Suspect]
     Dosage: 50 MG, QD
     Route: 048
     Dates: start: 2013, end: 20130413
  3. MELBIN [Concomitant]
     Indication: TYPE 2 DIABETES MELLITUS

REACTIONS (1)
  - Arrhythmia [Recovering/Resolving]
